FAERS Safety Report 23578362 (Version 2)
Quarter: 2024Q2

REPORT INFORMATION
  Report Type: Report from Study
  Country: CA (occurrence: CA)
  Receive Date: 20240229
  Receipt Date: 20240424
  Transmission Date: 20240716
  Serious: Yes (Other)
  Sender: FDA-Public Use
  Company Number: CA-JNJFOC-20240116423

PATIENT
  Age: 33 Year
  Sex: Male

DRUGS (2)
  1. REMICADE [Suspect]
     Active Substance: INFLIXIMAB
     Indication: Crohn^s disease
     Dosage: 119 INFUSIONS TAKEN BY THE PATIENT.
     Route: 041
     Dates: start: 20180704
  2. REMICADE [Suspect]
     Active Substance: INFLIXIMAB
     Route: 041

REACTIONS (7)
  - Cystitis [Recovered/Resolved]
  - Crohn^s disease [Not Recovered/Not Resolved]
  - Orchidectomy [Recovered/Resolved]
  - Urinary tract infection [Recovering/Resolving]
  - Frequent bowel movements [Unknown]
  - General physical health deterioration [Unknown]
  - Therapeutic response decreased [Unknown]

NARRATIVE: CASE EVENT DATE: 20240202
